FAERS Safety Report 9164880 (Version 2)
Quarter: 2013Q1

REPORT INFORMATION
  Report Type: Spontaneous
  Country: US (occurrence: None)
  Receive Date: 20130226
  Receipt Date: 20130326
  Transmission Date: 20140127
  Serious: Yes (Hospitalization)
  Sender: FDA-Public Use
  Company Number: ACO_34367_2013

PATIENT
  Age: 63 Year
  Sex: Male

DRUGS (1)
  1. AMPYRA [Suspect]
     Indication: GAIT DISTURBANCE
     Dates: start: 20120104

REACTIONS (7)
  - Hip fracture [None]
  - Fall [None]
  - Multiple sclerosis relapse [None]
  - Infection [None]
  - Cerebral haemorrhage [None]
  - Joint injury [None]
  - Walking aid user [None]
